FAERS Safety Report 14650748 (Version 2)
Quarter: 2018Q1

REPORT INFORMATION
  Report Type: Spontaneous
  Country: IN (occurrence: IN)
  Receive Date: 20180316
  Receipt Date: 20180321
  Transmission Date: 20180509
  Serious: Yes (Hospitalization, Other)
  Sender: FDA-Public Use
  Company Number: IN-PFIZER INC-2018105483

PATIENT
  Age: 29 Year
  Sex: Female

DRUGS (1)
  1. AMLODIPINE BESILATE [Suspect]
     Active Substance: AMLODIPINE BESYLATE
     Dosage: 400 MG, SINGLE (40 TABLETS OF 10 MG)
     Route: 048

REACTIONS (7)
  - Hypotension [Recovered/Resolved]
  - Overdose [Unknown]
  - Acute respiratory distress syndrome [Unknown]
  - Bradycardia [Unknown]
  - Vomiting [Recovered/Resolved]
  - Cardiovascular disorder [Recovered/Resolved]
  - Metabolic acidosis [Unknown]
